FAERS Safety Report 8059671-3 (Version None)
Quarter: 2012Q1

REPORT INFORMATION
  Report Type: 
  Country: None (occurrence: None)
  Receive Date: 20120120
  Receipt Date: 20120113
  Transmission Date: 20120608
  Serious: Yes (Other)
  Sender: FDA-Public Use
  Company Number: PHHY2012CA001672

PATIENT
  Sex: Female

DRUGS (1)
  1. GILENYA [Suspect]
     Indication: RELAPSING-REMITTING MULTIPLE SCLEROSIS
     Dosage: 0.5 MG, DAILY
     Route: 048
     Dates: start: 20111207

REACTIONS (5)
  - ARTHRALGIA [None]
  - EYELID OEDEMA [None]
  - PAIN IN EXTREMITY [None]
  - WEIGHT INCREASED [None]
  - FLUID RETENTION [None]
